FAERS Safety Report 10201158 (Version 1)
Quarter: 2014Q2

REPORT INFORMATION
  Report Type: Spontaneous
  Country: PH (occurrence: PH)
  Receive Date: 20140528
  Receipt Date: 20140528
  Transmission Date: 20141212
  Serious: Yes (Death)
  Sender: FDA-Public Use
  Company Number: PH-009507513-1405PHL013021

PATIENT
  Age: 70 Year
  Sex: Male

DRUGS (1)
  1. JANUVIA [Suspect]
     Dosage: 1 DF, QD
     Route: 048
     Dates: start: 2012

REACTIONS (1)
  - Death [Fatal]
